FAERS Safety Report 12497500 (Version 2)
Quarter: 2017Q1

REPORT INFORMATION
  Report Type: Spontaneous
  Country: DE (occurrence: DE)
  Receive Date: 20160624
  Receipt Date: 20170109
  Transmission Date: 20170428
  Serious: Yes (Other)
  Sender: FDA-Public Use
  Company Number: DE-CIPLA LTD.-2016DE08111

PATIENT

DRUGS (7)
  1. BUPROPION. [Suspect]
     Active Substance: BUPROPION
     Indication: PRODUCT USED FOR UNKNOWN INDICATION
     Dosage: 2400 MG/TG
     Route: 042
  2. PREGABALIN. [Suspect]
     Active Substance: PREGABALIN
     Indication: SUBSTANCE ABUSE
     Dosage: UNK
     Route: 048
  3. PREGABALIN. [Suspect]
     Active Substance: PREGABALIN
     Dosage: UNK
     Route: 065
  4. QUETIAPINE. [Suspect]
     Active Substance: QUETIAPINE
     Indication: WITHDRAWAL SYNDROME
     Dosage: N 4 * 25 MG
     Route: 065
  5. BUPROPION. [Suspect]
     Active Substance: BUPROPION
     Indication: SUBSTANCE ABUSE
     Dosage: UNK
     Route: 048
  6. RIVAROXABAN [Concomitant]
     Active Substance: RIVAROXABAN
     Dosage: UNK
     Route: 065
  7. BUPROPION. [Suspect]
     Active Substance: BUPROPION
     Indication: DEPRESSION
     Dosage: UNK
     Route: 048

REACTIONS (29)
  - Delusion [Recovering/Resolving]
  - Akathisia [Unknown]
  - Insomnia [Unknown]
  - Product use issue [Unknown]
  - Distractibility [Recovering/Resolving]
  - Incoherent [Recovering/Resolving]
  - Seizure [Unknown]
  - Overdose [Recovering/Resolving]
  - Feeling drunk [Recovering/Resolving]
  - Drug withdrawal syndrome [Recovering/Resolving]
  - Affective disorder [Unknown]
  - Energy increased [Unknown]
  - Myalgia [Unknown]
  - Transaminases abnormal [Unknown]
  - Substance abuse [Recovering/Resolving]
  - Drug dependence [Unknown]
  - Drug dependence [Recovering/Resolving]
  - Medication error [Unknown]
  - Mood swings [Recovering/Resolving]
  - Psychomotor hyperactivity [Recovering/Resolving]
  - Increased appetite [Unknown]
  - Substance abuse [Unknown]
  - Feeling drunk [Unknown]
  - Restless legs syndrome [Recovered/Resolved]
  - Agitation [Unknown]
  - Distractibility [Unknown]
  - Delusion [Unknown]
  - Myalgia [Recovered/Resolved]
  - Intentional overdose [Recovering/Resolving]
